FAERS Safety Report 8210992-0 (Version None)
Quarter: 2012Q1

REPORT INFORMATION
  Report Type: 
  Country: None (occurrence: None)
  Receive Date: 20120229
  Receipt Date: 20120221
  Transmission Date: 20120608
  Serious: Yes (Other)
  Sender: FDA-Public Use
  Company Number: CPI-2378

PATIENT
  Age: 20 Year
  Sex: Female
  Weight: 59 kg

DRUGS (7)
  1. RANITIDINE [Concomitant]
  2. LACTULOSE [Concomitant]
  3. ALBUMIN HUMAN SOLUTION [Concomitant]
  4. HEMODIALYSIS [Concomitant]
  5. PHYTONADIONE [Concomitant]
  6. CIPROFLOXACIN [Concomitant]
  7. ACETYLCYSTEINE [Suspect]
     Indication: RENAL IMPAIRMENT
     Dosage: 600MG 3X/DAILY
     Dates: start: 20090501

REACTIONS (3)
  - HAEMODIALYSIS [None]
  - BLOOD UREA INCREASED [None]
  - BLOOD CREATININE INCREASED [None]
